FAERS Safety Report 25530951 (Version 1)
Quarter: 2025Q3

REPORT INFORMATION
  Report Type: Spontaneous
  Country: US (occurrence: US)
  Receive Date: 20250708
  Receipt Date: 20250708
  Transmission Date: 20251020
  Serious: Yes (Other)
  Sender: TEVA
  Company Number: US-TEVA-VS-3347918

PATIENT

DRUGS (1)
  1. BUPRENORPHINE [Suspect]
     Active Substance: BUPRENORPHINE
     Indication: Product used for unknown indication
     Route: 062
     Dates: start: 2005

REACTIONS (13)
  - Neoplasm malignant [Unknown]
  - Haemochromatosis [Unknown]
  - Back injury [Unknown]
  - Joint injury [Unknown]
  - Product adhesion issue [Unknown]
  - Road traffic accident [Unknown]
  - Pain [Unknown]
  - Frustration tolerance decreased [Unknown]
  - Drug ineffective [Unknown]
  - Arthritis [Unknown]
  - Rib fracture [Unknown]
  - Spinal column injury [Unknown]
  - Crying [Unknown]
